FAERS Safety Report 19465772 (Version 2)
Quarter: 2021Q2

REPORT INFORMATION
  Report Type: Report from Study
  Country: US (occurrence: US)
  Receive Date: 20210626
  Receipt Date: 20210626
  Transmission Date: 20210717
  Serious: Yes (Hospitalization)
  Sender: FDA-Public Use
  Company Number: US-TAKEDA-US201929767

PATIENT
  Age: 71 Year
  Sex: Female

DRUGS (6)
  1. C1 INHIBITOR (HUMAN) [Suspect]
     Active Substance: HUMAN C1-ESTERASE INHIBITOR
     Indication: HEREDITARY ANGIOEDEMA
     Dosage: 1000 INTERNATIONAL UNIT
     Route: 042
  2. C1 INHIBITOR (HUMAN) [Suspect]
     Active Substance: HUMAN C1-ESTERASE INHIBITOR
     Indication: HEREDITARY ANGIOEDEMA
     Dosage: 1000 INTERNATIONAL UNIT
     Route: 042
  3. C1 INHIBITOR (HUMAN) [Suspect]
     Active Substance: HUMAN C1-ESTERASE INHIBITOR
     Dosage: 2 DOSAGE FORM(VIAL), Q3WEEKS
     Route: 058
     Dates: start: 20140911
  4. C1 INHIBITOR (HUMAN) [Suspect]
     Active Substance: HUMAN C1-ESTERASE INHIBITOR
     Indication: HEREDITARY ANGIOEDEMA
     Dosage: 1000 INTERNATIONAL UNIT
     Route: 042
  5. C1 INHIBITOR (HUMAN) [Suspect]
     Active Substance: HUMAN C1-ESTERASE INHIBITOR
     Dosage: 2 DOSAGE FORM(VIAL), Q3WEEKS
     Route: 058
     Dates: start: 20140911
  6. C1 INHIBITOR (HUMAN) [Suspect]
     Active Substance: HUMAN C1-ESTERASE INHIBITOR
     Dosage: 2 DOSAGE FORM(VIAL), Q3WEEKS
     Route: 058
     Dates: start: 20140911

REACTIONS (2)
  - Off label use [Not Recovered/Not Resolved]
  - Gastrointestinal surgery [Recovering/Resolving]

NARRATIVE: CASE EVENT DATE: 20190909
